FAERS Safety Report 20580509 (Version 1)
Quarter: 2022Q1

REPORT INFORMATION
  Report Type: Spontaneous
  Country: ES (occurrence: ES)
  Receive Date: 20220311
  Receipt Date: 20220311
  Transmission Date: 20220423
  Serious: Yes (Hospitalization, Other)
  Sender: FDA-Public Use
  Company Number: ES-009507513-1803ESP013065

PATIENT
  Age: 49 Year
  Sex: Male
  Weight: 128 kg

DRUGS (9)
  1. FUROSEMIDE [Suspect]
     Active Substance: FUROSEMIDE
     Indication: Oedema peripheral
     Dosage: UNK
     Route: 048
     Dates: start: 20180216, end: 20180312
  2. ENALAPRIL\HYDROCHLOROTHIAZIDE [Suspect]
     Active Substance: ENALAPRIL\HYDROCHLOROTHIAZIDE
     Indication: Hypertension
     Dosage: UNK
     Route: 048
     Dates: start: 20170529, end: 20180312
  3. NIVOLUMAB [Suspect]
     Active Substance: NIVOLUMAB
     Indication: Sarcoma
     Dosage: 3 MILLIGRAM/KILOGRAM
     Route: 065
     Dates: start: 20171228, end: 20180228
  4. NIVOLUMAB [Suspect]
     Active Substance: NIVOLUMAB
     Indication: Soft tissue sarcoma
  5. SUNITINIB MALATE [Suspect]
     Active Substance: SUNITINIB MALATE
     Indication: Sarcoma
     Dosage: 25 MILLIGRAM, ONCE A DAY
     Route: 065
     Dates: start: 20171213, end: 20180312
  6. SUNITINIB MALATE [Suspect]
     Active Substance: SUNITINIB MALATE
     Indication: Soft tissue sarcoma
     Dosage: 25 MILLIGRAM, ONCE A DAY
     Route: 048
     Dates: start: 20171218, end: 20180312
  7. PREGABALIN [Concomitant]
     Active Substance: PREGABALIN
     Indication: Fibrosarcoma
     Dosage: UNK
     Route: 065
     Dates: start: 20170926, end: 20180312
  8. DEXKETOPROFEN [Concomitant]
     Active Substance: DEXKETOPROFEN
     Indication: Fibrosarcoma
     Dosage: UNK
     Route: 065
     Dates: start: 20170926, end: 20180312
  9. TRAMADOL HYDROCHLORIDE [Concomitant]
     Active Substance: TRAMADOL HYDROCHLORIDE
     Indication: Fibrosarcoma
     Dosage: UNK
     Route: 065
     Dates: start: 20170926

REACTIONS (3)
  - Acute kidney injury [Recovered/Resolved]
  - Nephritis [Recovered/Resolved]
  - Psoriatic arthropathy [Unknown]

NARRATIVE: CASE EVENT DATE: 20180312
